FAERS Safety Report 11239056 (Version 1)
Quarter: 2015Q3

REPORT INFORMATION
  Report Type: Spontaneous
  Country: GB (occurrence: GB)
  Receive Date: 20150706
  Receipt Date: 20150706
  Transmission Date: 20151125
  Serious: Yes (Other)
  Sender: FDA-Public Use
  Company Number: GB-AUROBINDO-AUR-APL-2015-05170

PATIENT

DRUGS (5)
  1. CLOPIDOGREL [Suspect]
     Active Substance: CLOPIDOGREL BISULFATE
     Indication: PROPHYLAXIS
     Dosage: 75 MILLIGRAM DAILY;
     Route: 048
     Dates: start: 20141210, end: 20150405
  2. PHENOBARBITAL. [Concomitant]
     Active Substance: PHENOBARBITAL
     Indication: EPILEPSY
     Dosage: 120 MILLIGRAM DAILY;
  3. PHENYTOIN SODIUM. [Concomitant]
     Active Substance: PHENYTOIN SODIUM
     Indication: EPILEPSY
     Dosage: 200 MILLIGRAM DAILY;
  4. CALCICHEW D3 [Concomitant]
     Active Substance: CALCIUM\CHOLECALCIFEROL
     Indication: PRODUCT USED FOR UNKNOWN INDICATION
     Dosage: ONE TO TWO TABLETS THREE TIMES A DAY
     Route: 065
  5. VITAMIN B SUBSTANCES [Concomitant]
     Indication: PRODUCT USED FOR UNKNOWN INDICATION
     Route: 065

REACTIONS (7)
  - Headache [Unknown]
  - Pruritus [Unknown]
  - Fatigue [Unknown]
  - Rash [Unknown]
  - Hyperhidrosis [Unknown]
  - Epilepsy [Unknown]
  - Head injury [Unknown]

NARRATIVE: CASE EVENT DATE: 20141231
